FAERS Safety Report 8520114-4 (Version None)
Quarter: 2012Q3

REPORT INFORMATION
  Report Type: 
  Country: None (occurrence: None)
  Receive Date: 20120719
  Receipt Date: 20120713
  Transmission Date: 20120928
  Serious: Yes (Hospitalization, Other)
  Sender: FDA-Public Use
  Company Number: US-BAYER-201014061NA

PATIENT
  Age: 38 Year
  Sex: Female

DRUGS (9)
  1. YASMIN [Suspect]
     Dosage: UNK
     Route: 048
     Dates: start: 20050101, end: 20090615
  2. PREDNISONE [Concomitant]
     Dosage: 20 MG, UNK
     Route: 048
     Dates: start: 20080423
  3. ORTHO TRI-CYCLEN [Concomitant]
  4. TRIVORA-21 [Concomitant]
     Dosage: UNK
     Dates: start: 20080101
  5. ANTIBIOTICS [Concomitant]
  6. SKELAXIN [Concomitant]
     Dosage: 800 MG, UNK
     Route: 048
     Dates: start: 20080501
  7. FEXOFENADINE [Concomitant]
     Dosage: 180 MG, UNK
     Route: 048
     Dates: start: 20080423
  8. ACIPHEX [Concomitant]
     Dosage: 20 MG, UNK
     Route: 048
     Dates: start: 20080317
  9. OXYCODONE HCL [Concomitant]
     Dosage: UNK
     Dates: start: 20080423

REACTIONS (8)
  - ENDOMETRIOSIS [None]
  - CHOLECYSTITIS CHRONIC [None]
  - PULMONARY EMBOLISM [None]
  - THROMBOSED VARICOSE VEIN [None]
  - THROMBOSIS [None]
  - MENORRHAGIA [None]
  - CHOLECYSTECTOMY [None]
  - HYSTERECTOMY [None]
